FAERS Safety Report 4409966-7 (Version None)
Quarter: 2004Q3

REPORT INFORMATION
  Report Type: 
  Country: None (occurrence: None)
  Receive Date: 20040723
  Receipt Date: 20040712
  Transmission Date: 20050211
  Serious: Yes (Hospitalization)
  Sender: FDA-Public Use
  Company Number: 2004S1000004

PATIENT
  Age: 79 Year
  Sex: Female
  Weight: 40.8237 kg

DRUGS (8)
  1. OXANDRIN [Suspect]
     Indication: WEIGHT CONTROL
     Dosage: 5 MG;BID;PO
     Route: 048
     Dates: start: 20040121, end: 20040122
  2. WARFARIN SODIUM [Concomitant]
  3. XALATAN [Concomitant]
  4. TRUSOPT [Concomitant]
  5. VIOXX [Concomitant]
  6. SYNTHROID [Concomitant]
  7. CALCIUM [Concomitant]
  8. VITAMIN D [Concomitant]

REACTIONS (15)
  - BLOOD CREATININE INCREASED [None]
  - CARBOHYDRATE ANTIGEN 125 INCREASED [None]
  - DIARRHOEA [None]
  - EATING DISORDER [None]
  - EPISTAXIS [None]
  - FAECAL INCONTINENCE [None]
  - FAILURE TO THRIVE [None]
  - INSOMNIA [None]
  - INTERNATIONAL NORMALISED RATIO INCREASED [None]
  - MALIGNANT NEOPLASM PROGRESSION [None]
  - POSTOPERATIVE THROMBOSIS [None]
  - PROTHROMBIN TIME PROLONGED [None]
  - STENT OCCLUSION [None]
  - THROMBOSIS [None]
  - URINARY TRACT INFECTION [None]
